FAERS Safety Report 8830717 (Version 1)
Quarter: 2012Q4

REPORT INFORMATION
  Report Type: 
  Country: FR (occurrence: FR)
  Receive Date: 20121009
  Receipt Date: 20121009
  Transmission Date: 20130627
  Serious: Yes (Other)
  Sender: FDA-Public Use
  Company Number: FR-JNJFOC-20120906541

PATIENT
  Age: 70 Year
  Sex: Male
  Weight: 85 kg

DRUGS (4)
  1. REMICADE [Suspect]
     Indication: CROHN^S DISEASE
     Dosage: last infusion
     Route: 042
     Dates: start: 20120911
  2. REMICADE [Suspect]
     Indication: CROHN^S DISEASE
     Dosage: 5th infusion
     Route: 042
     Dates: start: 201102
  3. HYDROCORTISONE [Suspect]
     Indication: PREMEDICATION
     Route: 065
  4. HYDROCORTISONE [Suspect]
     Indication: PREMEDICATION
     Route: 065

REACTIONS (6)
  - Infusion related reaction [Recovered/Resolved]
  - Rash [Recovered/Resolved]
  - Erythema [Recovered/Resolved]
  - Chest discomfort [Recovered/Resolved]
  - Dyspnoea [Recovered/Resolved]
  - Palpitations [Recovered/Resolved]
